FAERS Safety Report 7978405-1 (Version None)
Quarter: 2011Q4

REPORT INFORMATION
  Report Type: 
  Country: None (occurrence: None)
  Receive Date: 20111214
  Receipt Date: 20111206
  Transmission Date: 20120403
  Serious: Yes (Other)
  Sender: FDA-Public Use
  Company Number: FR-PFIZER INC-2011302138

PATIENT
  Sex: Male

DRUGS (1)
  1. ARGATROBAN [Suspect]
     Route: 042

REACTIONS (2)
  - PROTHROMBIN TIME SHORTENED [None]
  - BLOOD FIBRINOGEN DECREASED [None]
